FAERS Safety Report 6951576-1 (Version None)
Quarter: 2010Q3

REPORT INFORMATION
  Report Type: 
  Country: None (occurrence: None)
  Receive Date: 20100828
  Receipt Date: 20100326
  Transmission Date: 20110219
  Serious: No
  Sender: FDA-Public Use
  Company Number: US-ABBOTT-10P-163-0635873-00

PATIENT
  Sex: Female
  Weight: 45.4 kg

DRUGS (2)
  1. NIASPAN [Suspect]
     Indication: BLOOD CHOLESTEROL INCREASED
     Dates: start: 20100324, end: 20100326
  2. AVAPRO [Concomitant]
     Indication: HYPERTENSION

REACTIONS (4)
  - DYSPHAGIA [None]
  - FEELING HOT [None]
  - PRURITUS [None]
  - WRONG TECHNIQUE IN DRUG USAGE PROCESS [None]
